FAERS Safety Report 24101704 (Version 1)
Quarter: 2024Q3

REPORT INFORMATION
  Report Type: Spontaneous
  Country: US (occurrence: US)
  Receive Date: 20240717
  Receipt Date: 20240717
  Transmission Date: 20241016
  Serious: No
  Sender: AMGEN
  Company Number: US-AMGEN-USASP2024136581

PATIENT
  Age: 58 Year
  Sex: Female

DRUGS (5)
  1. RITUXIMAB [Suspect]
     Active Substance: RITUXIMAB
     Indication: Dermatomyositis
     Dosage: 1 GRAM, Q2WK
     Route: 042
  2. PREDNISONE [Suspect]
     Active Substance: PREDNISONE
     Indication: Dermatomyositis
     Dosage: 40 MILLIGRAM, QD
     Route: 065
  3. PREDNISONE [Suspect]
     Active Substance: PREDNISONE
     Dosage: UNK,TAPER OFF
     Route: 065
  4. Immunoglobulin [Concomitant]
     Dosage: 1 GRAM PER KILOGRAM, QD
     Route: 042
  5. Immunoglobulin [Concomitant]
     Dosage: 1 GRAM PER KILOGRAM, QMO
     Route: 042

REACTIONS (2)
  - Off label use [Unknown]
  - Drug effective for unapproved indication [Unknown]
